FAERS Safety Report 4523542-7 (Version None)
Quarter: 2004Q4

REPORT INFORMATION
  Report Type: 
  Country: None (occurrence: None)
  Receive Date: 20041208
  Receipt Date: 20041124
  Transmission Date: 20050328
  Serious: Yes (Life-Threatening, Hospitalization)
  Sender: FDA-Public Use
  Company Number: 2004BI000076

PATIENT
  Age: 63 Year
  Sex: Male
  Weight: 90.7194 kg

DRUGS (4)
  1. ZEVALIN [Suspect]
     Dosage: SEE IMAGE
     Route: 042
     Dates: start: 20041102, end: 20041102
  2. ZEVALIN [Suspect]
     Dosage: SEE IMAGE
     Route: 042
     Dates: start: 20041102, end: 20041102
  3. ZEVALIN [Suspect]
     Dosage: SEE IMAGE
     Route: 042
     Dates: start: 20041109, end: 20041109
  4. ZEVALIN [Suspect]
     Dosage: SEE IMAGE
     Route: 042
     Dates: start: 20041109, end: 20041109

REACTIONS (6)
  - EYE DISORDER [None]
  - MUCOSAL EROSION [None]
  - RASH GENERALISED [None]
  - RESPIRATORY DISORDER [None]
  - SKIN DESQUAMATION [None]
  - WHEEZING [None]
